FAERS Safety Report 6552457-8 (Version None)
Quarter: 2010Q1

REPORT INFORMATION
  Report Type: 
  Country: None (occurrence: None)
  Receive Date: 20100126
  Receipt Date: 20100113
  Transmission Date: 20100710
  Serious: Yes (Hospitalization, Disabling, Other)
  Sender: FDA-Public Use
  Company Number: PHHY2009JP47394

PATIENT
  Sex: Female
  Weight: 45 kg

DRUGS (21)
  1. ZOMETA [Suspect]
     Indication: METASTASES TO BONE
     Dosage: 4 MG PER ADMINISTRATION
     Route: 042
     Dates: start: 20070101, end: 20080418
  2. ZOMETA [Suspect]
     Dosage: 4 MG PER ADMINISTRATION
     Dates: start: 20080728, end: 20090902
  3. BISPHONAL [Suspect]
     Dosage: UNK
     Route: 042
     Dates: start: 20060301, end: 20070601
  4. ANTHRACYCLINES [Concomitant]
  5. OTHER ANTINEOPLASTIC AGENTS [Concomitant]
  6. NAVELBINE [Concomitant]
     Route: 042
  7. TAMOXIFEN CITRATE [Concomitant]
  8. FARESTON [Concomitant]
     Route: 048
  9. TAXOL [Concomitant]
     Indication: CHEMOTHERAPY
     Dosage: 100 MG, UNK
     Route: 041
     Dates: start: 20071031, end: 20090304
  10. RESTAMIN [Concomitant]
     Dosage: 50 MG, UNK
     Route: 048
     Dates: start: 20071031, end: 20090304
  11. NORVASC [Concomitant]
     Indication: HYPERTENSION
     Dosage: 215 MG, UNK
     Route: 048
  12. ASPIRIN [Concomitant]
     Indication: HYPERTENSION
     Dosage: 100 MG, UNK
     Route: 048
  13. PURSENNID                               /SCH/ [Concomitant]
     Indication: CONSTIPATION
     Dosage: 12 MG, UNK
     Route: 048
  14. RAMOSETRON HYDROCHLORIDE [Concomitant]
     Indication: CHEMOTHERAPY
     Dosage: 0.1 MG, UNK
     Route: 048
     Dates: start: 20071031, end: 20090304
  15. MAGNESIUM OXIDE [Concomitant]
     Indication: CONSTIPATION
     Dosage: 2 G, UNK
     Route: 048
  16. GASTER [Concomitant]
     Indication: CHEMOTHERAPY
     Dosage: 20 MG, UNK
     Route: 041
     Dates: start: 20071031, end: 20090304
  17. NOLVADEX [Concomitant]
     Dosage: UNK
     Dates: start: 20060301
  18. AREDIA [Concomitant]
     Dosage: UNK
     Dates: start: 20031224
  19. ARIMIDEX [Concomitant]
     Dosage: UNK
     Dates: start: 20031223
  20. OXYCONTIN [Concomitant]
  21. DUROTEP JANSSEN [Concomitant]

REACTIONS (8)
  - ASPARTATE AMINOTRANSFERASE INCREASED [None]
  - C-REACTIVE PROTEIN INCREASED [None]
  - IMPAIRED HEALING [None]
  - MALIGNANT NEOPLASM PROGRESSION [None]
  - OSTEOMYELITIS [None]
  - SEQUESTRECTOMY [None]
  - SWELLING [None]
  - TOOTH EXTRACTION [None]
